FAERS Safety Report 9591891 (Version 2)
Quarter: 2013Q4

REPORT INFORMATION
  Report Type: Spontaneous
  Country: US (occurrence: US)
  Receive Date: 20131004
  Receipt Date: 20131004
  Transmission Date: 20140711
  Serious: No
  Sender: FDA-Public Use
  Company Number: US-AMGEN-USASP2012069016

PATIENT
  Age: 52 Year
  Sex: Female

DRUGS (1)
  1. ENBREL [Suspect]
     Indication: PSORIASIS
     Dosage: 50 MG, 2 TIMES/WK
     Route: 058
     Dates: start: 20121004, end: 20121014

REACTIONS (4)
  - Rash erythematous [Unknown]
  - Rash pruritic [Recovered/Resolved]
  - Urticaria [Unknown]
  - Rash generalised [Recovered/Resolved]
